FAERS Safety Report 21107336 (Version 1)
Quarter: 2022Q3

REPORT INFORMATION
  Report Type: Report from Study
  Country: DE (occurrence: DE)
  Receive Date: 20220720
  Receipt Date: 20220720
  Transmission Date: 20221027
  Serious: Yes (Hospitalization)
  Sender: FDA-Public Use
  Company Number: DE-SHIRE-DE202023275

PATIENT
  Age: 59 Year
  Sex: Female
  Weight: 89 kg

DRUGS (22)
  1. PARATHYROID HORMONE [Suspect]
     Active Substance: PARATHYROID HORMONE
     Indication: Hypoparathyroidism
     Dosage: 100 MICROGRAM, QD
     Route: 058
     Dates: start: 20180829
  2. PARATHYROID HORMONE [Suspect]
     Active Substance: PARATHYROID HORMONE
     Indication: Hypoparathyroidism
     Dosage: 100 MICROGRAM, QD
     Route: 058
     Dates: start: 20180829
  3. PARATHYROID HORMONE [Suspect]
     Active Substance: PARATHYROID HORMONE
     Indication: Hypoparathyroidism
     Dosage: 100 MICROGRAM, QD
     Route: 058
     Dates: start: 20180829
  4. PARATHYROID HORMONE [Suspect]
     Active Substance: PARATHYROID HORMONE
     Dosage: 100 MICROGRAM
     Route: 058
     Dates: start: 20180829
  5. PARATHYROID HORMONE [Suspect]
     Active Substance: PARATHYROID HORMONE
     Dosage: 100 MICROGRAM
     Route: 058
     Dates: start: 20180829
  6. PARATHYROID HORMONE [Suspect]
     Active Substance: PARATHYROID HORMONE
     Dosage: 100 MICROGRAM
     Route: 058
     Dates: start: 20180829
  7. PARATHYROID HORMONE [Suspect]
     Active Substance: PARATHYROID HORMONE
     Dosage: 75 MICROGRAM
     Route: 058
     Dates: start: 20180829
  8. PARATHYROID HORMONE [Suspect]
     Active Substance: PARATHYROID HORMONE
     Dosage: 75 MICROGRAM
     Route: 058
     Dates: start: 20180829
  9. PARATHYROID HORMONE [Suspect]
     Active Substance: PARATHYROID HORMONE
     Dosage: 75 MICROGRAM
     Route: 058
     Dates: start: 20180829
  10. LIOTHYRONINE HYDROCHLORIDE [Suspect]
     Active Substance: LIOTHYRONINE HYDROCHLORIDE
     Indication: Depression
     Route: 065
  11. EUTHYROX [Concomitant]
     Active Substance: LEVOTHYROXINE SODIUM
     Indication: Thyroidectomy
     Dosage: 125 MICROGRAM, QD
     Route: 048
  12. EUTHYROX [Concomitant]
     Active Substance: LEVOTHYROXINE SODIUM
     Indication: Post procedural complication
  13. CALCITRIOL [Concomitant]
     Active Substance: CALCITRIOL
     Indication: Hypoparathyroidism
  14. CALCITRIOL [Concomitant]
     Active Substance: CALCITRIOL
     Dosage: 2000 INTERNATIONAL UNIT, 1/WEEK
     Route: 048
  15. MAGNESIUM VERLA [MAGNESIUM] [Concomitant]
     Indication: Product used for unknown indication
     Dosage: UNK UNK, BID
     Route: 048
  16. MAGNESIUM VERLA [MAGNESIUM] [Concomitant]
     Indication: Magnesium deficiency
  17. POTASSIUM CHLORIDE [Concomitant]
     Active Substance: POTASSIUM CHLORIDE
     Indication: Hypokalaemia
     Dosage: UNK UNK, QD
     Route: 048
  18. METFORMIN [Concomitant]
     Active Substance: METFORMIN HYDROCHLORIDE
     Indication: Insulin resistance
     Dosage: 850 MILLIGRAM, BID
     Route: 048
  19. FRUBIASE CALCIUM FORTE [Concomitant]
     Indication: Hypoparathyroidism
     Dosage: 350 MILLIGRAM
     Route: 050
  20. FRUBIASE CALCIUM FORTE [Concomitant]
     Dosage: 500 MILLIGRAM
     Route: 050
  21. CHOLECALCIFEROL [Concomitant]
     Active Substance: CHOLECALCIFEROL
     Indication: Product used for unknown indication
     Dosage: 20 INTERNATIONAL UNIT, 1/WEEK
     Route: 048
  22. CHOLECALCIFEROL [Concomitant]
     Active Substance: CHOLECALCIFEROL
     Indication: Hypoparathyroidism
     Dosage: 20000 INTERNATIONAL UNIT, 1/WEEK
     Route: 048

REACTIONS (15)
  - Abdominal pain upper [Recovering/Resolving]
  - Nausea [Recovered/Resolved]
  - Abdominal pain [Recovered/Resolved]
  - Muscle spasms [Recovered/Resolved]
  - Vertigo [Recovered/Resolved]
  - Balance disorder [Recovered/Resolved]
  - Discomfort [Recovered/Resolved]
  - Magnesium deficiency [Recovered/Resolved]
  - Cholelithiasis [Recovered/Resolved]
  - Liver function test abnormal [Not Recovered/Not Resolved]
  - Pancreatic disorder [Not Recovered/Not Resolved]
  - Hepatic steatosis [Not Recovered/Not Resolved]
  - Diarrhoea [Recovered/Resolved]
  - Bone metabolism biochemical marker increased [Not Recovered/Not Resolved]
  - Off label use [Unknown]
